FAERS Safety Report 6970016-X (Version None)
Quarter: 2010Q3

REPORT INFORMATION
  Report Type: 
  Country: None (occurrence: None)
  Receive Date: 20100823
  Receipt Date: 20100624
  Transmission Date: 20110219
  Serious: No
  Sender: FDA-Public Use
  Company Number: 014584

PATIENT
  Sex: Female

DRUGS (2)
  1. CIMZIA [Suspect]
     Dosage: (SUBCUTANEOUS)
     Route: 058
     Dates: start: 20090701
  2. LOMOTIL [Suspect]
     Dosage: (6 TABLETS), (3 TABLETS), (ONE TABLET)

REACTIONS (1)
  - CONSTIPATION [None]
